FAERS Safety Report 14942881 (Version 1)
Quarter: 2018Q2

REPORT INFORMATION
  Report Type: Spontaneous
  Country: CA (occurrence: CA)
  Receive Date: 20180528
  Receipt Date: 20180528
  Transmission Date: 20180711
  Serious: Yes (Death, Hospitalization)
  Sender: FDA-Public Use
  Company Number: CA-ROCHE-2128825

PATIENT
  Age: 58 Year
  Sex: Male

DRUGS (6)
  1. APO-CLARITHROMYCIN [Suspect]
     Active Substance: CLARITHROMYCIN
     Indication: PRODUCT USED FOR UNKNOWN INDICATION
     Route: 065
  2. ESBRIET [Suspect]
     Active Substance: PIRFENIDONE
     Route: 048
  3. AMOXICILLIN AND CLAVULANATE POTASSIUM [Suspect]
     Active Substance: AMOXICILLIN\CLAVULANATE POTASSIUM
     Indication: PRODUCT USED FOR UNKNOWN INDICATION
     Route: 065
  4. AMLODIPINE BESILATE [Concomitant]
     Active Substance: AMLODIPINE BESYLATE
     Indication: PRODUCT USED FOR UNKNOWN INDICATION
     Route: 065
  5. ESBRIET [Suspect]
     Active Substance: PIRFENIDONE
     Indication: IDIOPATHIC PULMONARY FIBROSIS
     Route: 048
  6. ESBRIET [Suspect]
     Active Substance: PIRFENIDONE
     Route: 048

REACTIONS (28)
  - Death [Fatal]
  - Blood cholesterol increased [Unknown]
  - Contusion [Unknown]
  - Speech disorder [Unknown]
  - Appetite disorder [Unknown]
  - Lung neoplasm [Unknown]
  - Anxiety [Unknown]
  - Eating disorder [Unknown]
  - Oropharyngeal pain [Unknown]
  - Scratch [Unknown]
  - Weight decreased [Unknown]
  - Pulmonary function test abnormal [Unknown]
  - Dry mouth [Unknown]
  - Dyspnoea [Unknown]
  - Fatigue [Unknown]
  - Irregular breathing [Unknown]
  - Drug ineffective [Unknown]
  - Feeling cold [Unknown]
  - Loss of consciousness [Unknown]
  - Nausea [Unknown]
  - Road traffic accident [Unknown]
  - Decreased appetite [Unknown]
  - Inflammation [Unknown]
  - Malaise [Unknown]
  - Nasopharyngitis [Unknown]
  - Pneumonia [Unknown]
  - Asthenia [Unknown]
  - Chest pain [Unknown]
